FAERS Safety Report 9929754 (Version 2)
Quarter: 2014Q1

REPORT INFORMATION
  Report Type: Spontaneous
  Country: IT (occurrence: IT)
  Receive Date: 20140227
  Receipt Date: 20140227
  Transmission Date: 20141002
  Serious: Yes (Death)
  Sender: FDA-Public Use
  Company Number: IT-CUBIST PHARMACEUTICAL, INC.-2013CBST000368

PATIENT
  Sex: 0

DRUGS (4)
  1. CUBICIN [Suspect]
     Indication: STAPHYLOCOCCAL INFECTION
     Dosage: 6 MG/KG, Q24H
     Route: 042
     Dates: start: 20100205, end: 20100215
  2. CUBICIN [Suspect]
     Indication: MEDIASTINAL BIOPSY ABNORMAL
     Dosage: 60 MG, Q24H
     Route: 042
     Dates: start: 20100205, end: 20100215
  3. CUBICIN [Suspect]
     Indication: OFF LABEL USE
  4. CARDIOVASCULAR SYSTEM DRUGS [Concomitant]
     Indication: CARDIOVASCULAR DISORDER
     Dosage: UNK UNK, UNK
     Route: 065

REACTIONS (2)
  - Congenital cardiovascular anomaly [Fatal]
  - Condition aggravated [Fatal]
